FAERS Safety Report 21130358 (Version 1)
Quarter: 2022Q3

REPORT INFORMATION
  Report Type: Spontaneous
  Country: US (occurrence: US)
  Receive Date: 20220726
  Receipt Date: 20220726
  Transmission Date: 20221027
  Serious: Yes (Other)
  Sender: FDA-Public Use
  Company Number: ENDG22-04182

PATIENT
  Sex: Male

DRUGS (2)
  1. PENICILLAMINE [Suspect]
     Active Substance: PENICILLAMINE
     Indication: Cystinuria
     Dosage: UNK UNKNOWN, UNKNOWN
     Route: 065
  2. PENICILLAMINE [Suspect]
     Active Substance: PENICILLAMINE
     Dosage: UNK UNKNOWN, UNKNOWN, (CUTTING BACK ON CONSUMPTION)
     Route: 065

REACTIONS (2)
  - Surgery [Unknown]
  - Intentional product use issue [Not Recovered/Not Resolved]
